FAERS Safety Report 25248138 (Version 1)
Quarter: 2025Q2

REPORT INFORMATION
  Report Type: Spontaneous
  Country: HR (occurrence: HR)
  Receive Date: 20250429
  Receipt Date: 20250429
  Transmission Date: 20250716
  Serious: Yes (Hospitalization)
  Sender: ALEXION PHARMACEUTICALS
  Company Number: HR-AstraZeneca-CH-00856471A

PATIENT

DRUGS (1)
  1. SAPHNELO [Suspect]
     Active Substance: ANIFROLUMAB-FNIA
     Indication: Systemic lupus erythematosus

REACTIONS (3)
  - Influenza [Recovering/Resolving]
  - Cerebrovascular accident [Recovering/Resolving]
  - Inappropriate schedule of product administration [Recovering/Resolving]
